FAERS Safety Report 20706284 (Version 1)
Quarter: 2022Q2

REPORT INFORMATION
  Report Type: Spontaneous
  Country: FR (occurrence: FR)
  Receive Date: 20220413
  Receipt Date: 20220413
  Transmission Date: 20220720
  Serious: Yes (Hospitalization)
  Sender: FDA-Public Use
  Company Number: None

PATIENT
  Age: 49 Year
  Sex: Male
  Weight: 54 kg

DRUGS (8)
  1. TEGRETOL [Suspect]
     Active Substance: CARBAMAZEPINE
     Indication: Wrong patient received product
     Dosage: 400 MG (TOTAL)
     Route: 048
     Dates: start: 20220318, end: 20220318
  2. RISPERDAL [Suspect]
     Active Substance: RISPERIDONE
     Indication: Wrong patient received product
     Dosage: 2 MG (TOTAL)
     Route: 048
     Dates: start: 20220318, end: 20220318
  3. KEPPRA [Suspect]
     Active Substance: LEVETIRACETAM
     Indication: Wrong patient received product
     Dosage: 1500 MG (TOTAL)
     Route: 048
     Dates: start: 20220318, end: 20220318
  4. DOXYCYCLINE [Suspect]
     Active Substance: DOXYCYCLINE
     Indication: Wrong patient received product
     Dosage: 1 DOSAGE FORM (TOTAL)
     Route: 048
     Dates: start: 20220318, end: 20220318
  5. OROCAL VITAMINE D3 [Concomitant]
     Indication: Vitamin D deficiency
     Dosage: 1 DOSAGE FORM, QD (1-0-0 , 500 MG/ 200 I.U, SUCKING TABLET)
     Route: 048
     Dates: end: 20220317
  6. OROCAL VITAMINE D3 [Concomitant]
     Dosage: 1 DOSAGE FORM, QD (1-0-1)
     Route: 048
     Dates: start: 20220319
  7. ZONEGRAN [Concomitant]
     Active Substance: ZONISAMIDE
     Indication: Anxiety
     Dosage: 4 DOSAGE FORM, QD (2-0-2)
     Route: 048
     Dates: start: 20220319
  8. ZONEGRAN [Concomitant]
     Active Substance: ZONISAMIDE
     Dosage: 4 DOSAGE FORM, QD (2-0-2)
     Route: 048
     Dates: end: 20220317

REACTIONS (2)
  - Epilepsy [Recovered/Resolved]
  - Wrong patient received product [Recovered/Resolved]

NARRATIVE: CASE EVENT DATE: 20220318
